FAERS Safety Report 8218489-9 (Version None)
Quarter: 2012Q1

REPORT INFORMATION
  Report Type: 
  Country: None (occurrence: None)
  Receive Date: 20120319
  Receipt Date: 20120316
  Transmission Date: 20120608
  Serious: Yes (Other)
  Sender: FDA-Public Use
  Company Number: US-PFIZER INC-2012070150

PATIENT
  Sex: Female
  Weight: 61.224 kg

DRUGS (3)
  1. VIIBRYD [Concomitant]
     Indication: DEPRESSION
     Dosage: UNK
  2. CHANTIX [Suspect]
     Dosage: UNK
     Route: 048
     Dates: start: 20120308
  3. CHANTIX [Suspect]
     Indication: SMOKING CESSATION THERAPY
     Dosage: 0.5 MG, 1X/DAY
     Route: 048
     Dates: start: 20100101, end: 20100101

REACTIONS (5)
  - NAUSEA [None]
  - POST-TRAUMATIC STRESS DISORDER [None]
  - AGEUSIA [None]
  - DYSGEUSIA [None]
  - CONSTIPATION [None]
